FAERS Safety Report 13913332 (Version 1)
Quarter: 2017Q3

REPORT INFORMATION
  Report Type: Spontaneous
  Country: US (occurrence: US)
  Receive Date: 20170828
  Receipt Date: 20170828
  Transmission Date: 20171127
  Serious: No
  Sender: FDA-Public Use
  Company Number: US-ROCHE-1127236

PATIENT
  Sex: Male
  Weight: 28.1 kg

DRUGS (2)
  1. NUTROPIN [Suspect]
     Active Substance: SOMATROPIN
     Indication: THYROID STIMULATING HORMONE DEFICIENCY
  2. NUTROPIN [Suspect]
     Active Substance: SOMATROPIN
     Indication: GROWTH HORMONE DEFICIENCY
     Dosage: DILUTE WITH 2 ML  (0.35 ML PER INJECTION)
     Route: 058
     Dates: start: 199604

REACTIONS (2)
  - Pain [Unknown]
  - Epistaxis [Unknown]
